FAERS Safety Report 5405305-3 (Version None)
Quarter: 2007Q3

REPORT INFORMATION
  Report Type: 
  Country: None (occurrence: None)
  Receive Date: 20070803
  Receipt Date: 20070730
  Transmission Date: 20080115
  Serious: Yes (Hospitalization, Other)
  Sender: FDA-Public Use
  Company Number: B0481069A

PATIENT
  Age: 41 Year
  Sex: Male

DRUGS (8)
  1. LEXIVA [Suspect]
     Indication: HIV INFECTION
     Dosage: 1400MG TWICE PER DAY
     Route: 048
     Dates: start: 20051226, end: 20060807
  2. EPIVIR [Suspect]
     Indication: HIV INFECTION
     Dosage: 300MG PER DAY
     Route: 048
     Dates: start: 20051226, end: 20060807
  3. ZERIT [Concomitant]
     Indication: HIV INFECTION
     Route: 048
     Dates: start: 20060125, end: 20060807
  4. STOCRIN [Concomitant]
     Indication: HIV INFECTION
     Route: 048
     Dates: start: 20060808, end: 20070218
  5. EPZICOM [Concomitant]
     Indication: HIV INFECTION
     Dosage: 1TAB PER DAY
     Route: 048
     Dates: start: 20060808
  6. VALIXA [Concomitant]
     Indication: HIV INFECTION
     Route: 048
     Dates: start: 20060119, end: 20060725
  7. BAKTAR [Concomitant]
     Indication: PNEUMOCYSTIS JIROVECI PNEUMONIA
     Dosage: 1 PER DAY
     Route: 048
     Dates: start: 20060401, end: 20060807
  8. VALTREX [Concomitant]
     Indication: HERPES ZOSTER
     Dosage: 6 PER DAY
     Route: 048
     Dates: start: 20061014, end: 20061018

REACTIONS (4)
  - CYTOMEGALOVIRUS CHORIORETINITIS [None]
  - HILAR LYMPHADENOPATHY [None]
  - IMMUNE RECONSTITUTION SYNDROME [None]
  - PYREXIA [None]
